FAERS Safety Report 5776660-X (Version None)
Quarter: 2008Q2

REPORT INFORMATION
  Report Type: 
  Country: None (occurrence: None)
  Receive Date: 20080618
  Receipt Date: 20080612
  Transmission Date: 20081010
  Serious: No
  Sender: FDA-Public Use
  Company Number: US-BAXTER-2008BH002517

PATIENT
  Age: 56 Year
  Sex: Male
  Weight: 83 kg

DRUGS (3)
  1. HEPARIN SODIUM INJECTION [Suspect]
     Indication: PROPHYLAXIS
     Route: 033
     Dates: start: 20050101, end: 20080101
  2. ATENOLOL [Concomitant]
     Indication: BLOOD PRESSURE
     Dosage: DOSE UNIT:UNKNOWN
     Route: 065
  3. COZAAR [Concomitant]
     Indication: BLOOD PRESSURE
     Dosage: DOSE UNIT:UNKNOWN
     Route: 065

REACTIONS (4)
  - ABDOMINAL PAIN [None]
  - ABDOMINAL PAIN UPPER [None]
  - FLATULENCE [None]
  - HEART RATE INCREASED [None]
